FAERS Safety Report 4842134-3 (Version None)
Quarter: 2005Q4

REPORT INFORMATION
  Report Type: 
  Country: None (occurrence: None)
  Receive Date: 20051130
  Receipt Date: 20050818
  Transmission Date: 20060501
  Serious: Yes (Other)
  Sender: FDA-Public Use
  Company Number: US-MERCK-0508USA03440

PATIENT
  Age: 52 Year
  Sex: Male
  Weight: 111 kg

DRUGS (1)
  1. VIOXX [Suspect]
     Indication: PAIN
     Route: 048
     Dates: end: 20040101

REACTIONS (7)
  - BLOOD URINE PRESENT [None]
  - CONTUSION [None]
  - MYOCARDIAL INFARCTION [None]
  - OEDEMA [None]
  - POLLAKIURIA [None]
  - PROSTATE EXAMINATION ABNORMAL [None]
  - PROSTATIC DISORDER [None]
